FAERS Safety Report 23066406 (Version 1)
Quarter: 2023Q4

REPORT INFORMATION
  Report Type: Spontaneous
  Country: FR (occurrence: FR)
  Receive Date: 20231015
  Receipt Date: 20231015
  Transmission Date: 20240110
  Serious: Yes (Hospitalization, Other)
  Sender: FDA-Public Use
  Company Number: FR-AFSSAPS-AVCN2023000529

PATIENT
  Age: 45 Year
  Sex: Male

DRUGS (7)
  1. QUETIAPINE [Suspect]
     Active Substance: QUETIAPINE
     Indication: Product used for unknown indication
     Dosage: UNK (6 COMPRIM?S DOSAGE NON RENSEIGN?)
     Route: 048
     Dates: start: 20230928, end: 20230928
  2. CAMPHOR MENTHOL [Suspect]
     Active Substance: CAMPHOR (SYNTHETIC)\MENTHOL
     Indication: Product used for unknown indication
     Dosage: UNK (OCCASIONNEL)
     Route: 048
  3. CAMPHOR MENTHOL [Suspect]
     Active Substance: CAMPHOR (SYNTHETIC)\MENTHOL
     Dosage: UNK (1/2 BOUTEILLE DE RHUM)
     Route: 048
     Dates: start: 20230928, end: 20230928
  4. CANNABIS SATIVA SUBSP. INDICA TOP [Suspect]
     Active Substance: CANNABIS SATIVA SUBSP. INDICA TOP
     Indication: Product used for unknown indication
     Dosage: UNK (3 JOINTS)
     Dates: start: 20230928, end: 20230928
  5. CANNABIS SATIVA SUBSP. INDICA TOP [Suspect]
     Active Substance: CANNABIS SATIVA SUBSP. INDICA TOP
     Dosage: UNK (QUOTIDIEN)
  6. LOXAPINE [Suspect]
     Active Substance: LOXAPINE
     Indication: Product used for unknown indication
     Dosage: UNK 20 DROPS (20 GOUTTES)
     Route: 048
     Dates: start: 20230928, end: 20230928
  7. BROMHEXINE HYDROCHLORIDE\GUAIFENESIN\MENTHOL\TERBUTALINE SULFATE [Suspect]
     Active Substance: BROMHEXINE HYDROCHLORIDE\GUAIFENESIN\MENTHOL\TERBUTALINE SULFATE
     Indication: Product used for unknown indication
     Dosage: UNK (12 PA)

REACTIONS (4)
  - Poisoning [Recovered/Resolved]
  - Drug abuse [Not Recovered/Not Resolved]
  - Agitation [Recovered/Resolved]
  - Tremor [Recovered/Resolved]

NARRATIVE: CASE EVENT DATE: 20230928
